FAERS Safety Report 10978191 (Version 3)
Quarter: 2015Q2

REPORT INFORMATION
  Report Type: Report from Study
  Country: DE (occurrence: DE)
  Receive Date: 20150402
  Receipt Date: 20150519
  Transmission Date: 20150821
  Serious: Yes (Hospitalization, Other)
  Sender: FDA-Public Use
  Company Number: PHHY2015DE038177

PATIENT
  Sex: Female

DRUGS (14)
  1. TOREM [Concomitant]
     Active Substance: TORSEMIDE
     Indication: OEDEMA PERIPHERAL
     Dosage: 5 MG
     Route: 065
     Dates: start: 20141004, end: 20141010
  2. MUCOSOLVAN [Concomitant]
     Active Substance: AMBROXOL\CLENBUTEROL
     Indication: COUGH
     Dosage: 75 MG
     Route: 065
     Dates: start: 20141103, end: 20141113
  3. TANTUM VERDE [Concomitant]
     Active Substance: BENZYDAMINE HYDROCHLORIDE
     Indication: STOMATITIS
     Dosage: 1.5 OT, QD
     Route: 048
     Dates: start: 20141010, end: 20141115
  4. PIPERACILLIN [Concomitant]
     Active Substance: PIPERACILLIN
     Indication: COUGH
  5. AFINITOR [Suspect]
     Active Substance: EVEROLIMUS
     Indication: RENAL CELL CARCINOMA
     Dosage: 10 MG, QD
     Route: 048
     Dates: start: 20140728, end: 20140926
  6. RAMIPRIL. [Concomitant]
     Active Substance: RAMIPRIL
     Indication: HYPERTENSION
     Dosage: 5 MG, QD
     Route: 048
     Dates: start: 20130412, end: 20140902
  7. JODETTEN [Concomitant]
     Indication: PROPHYLAXIS
     Dosage: 2 MG, QW (WEEKLY)
     Route: 048
     Dates: start: 19900101
  8. MAGNESIUM VERLA//MAGNESIUM GLUTAMATE [Concomitant]
     Indication: PROPHYLAXIS
     Dosage: 205 OT, QD
     Route: 048
     Dates: start: 20130320, end: 20140927
  9. VOLON A//TRIAMCINOLONE ACETONIDE [Concomitant]
     Indication: STOMATITIS
     Dosage: 1 DF, PRN (1000 MG/G)
     Route: 048
     Dates: start: 20141201, end: 20150402
  10. AFINITOR [Suspect]
     Active Substance: EVEROLIMUS
     Dosage: 10 MG, QD
     Route: 048
     Dates: start: 20141012, end: 20150403
  11. DONTISOLON P [Concomitant]
     Indication: STOMATITIS
     Dosage: 1 DF, (5.58 MG/G), QD
     Route: 003
     Dates: start: 20140818, end: 20140924
  12. TAZOBACTAM [Concomitant]
     Active Substance: TAZOBACTAM
     Indication: COUGH
  13. PIPERACILLIN [Concomitant]
     Active Substance: PIPERACILLIN
     Indication: PNEUMONIA
     Dosage: 4 OT, UNK
     Route: 065
     Dates: start: 20140927, end: 20141006
  14. TAZOBACTAM [Concomitant]
     Active Substance: TAZOBACTAM
     Indication: PNEUMONIA
     Dosage: 0.5 OT
     Route: 065
     Dates: start: 20140927, end: 20141006

REACTIONS (13)
  - Metastases to bone [Not Recovered/Not Resolved]
  - Mean cell volume increased [Unknown]
  - Platelet count decreased [Unknown]
  - Metastases to bone [Recovered/Resolved]
  - Glomerular filtration rate decreased [Unknown]
  - Anxiety [Unknown]
  - Blood alkaline phosphatase increased [Unknown]
  - Alanine aminotransferase increased [Unknown]
  - Karnofsky scale worsened [Unknown]
  - Blood creatinine increased [Unknown]
  - Disease progression [Unknown]
  - Epilepsy [Recovered/Resolved]
  - Gamma-glutamyltransferase increased [Not Recovered/Not Resolved]

NARRATIVE: CASE EVENT DATE: 20140728
